FAERS Safety Report 5235511-2 (Version None)
Quarter: 2007Q1

REPORT INFORMATION
  Report Type: 
  Country: None (occurrence: None)
  Receive Date: 20070207
  Receipt Date: 20070207
  Transmission Date: 20070707
  Serious: Yes (Hospitalization)
  Sender: FDA-Public Use
  Company Number: None

PATIENT
  Age: 9 Year
  Sex: Male
  Weight: 19.7 kg

DRUGS (5)
  1. ETOPOSIDE [Suspect]
     Indication: METASTASIS
     Dosage: 50 MG   QD  PO
     Route: 048
     Dates: start: 20061127, end: 20061211
  2. ETOPOSIDE [Suspect]
     Indication: NEUROBLASTOMA
     Dosage: 50 MG   QD  PO
     Route: 048
     Dates: start: 20061127, end: 20061211
  3. THALIDOMIDE [Suspect]
     Dosage: 100 MG  QD  PO
     Route: 048
     Dates: start: 20061127
  4. CELEBREX [Concomitant]
  5. FENOFIBRATE [Concomitant]

REACTIONS (4)
  - FEBRILE NEUTROPENIA [None]
  - HAEMOGLOBIN DECREASED [None]
  - LOBAR PNEUMONIA [None]
  - PLATELET COUNT DECREASED [None]
